FAERS Safety Report 25413084 (Version 1)
Quarter: 2025Q2

REPORT INFORMATION
  Report Type: Spontaneous
  Country: US (occurrence: US)
  Receive Date: 20250609
  Receipt Date: 20250609
  Transmission Date: 20250717
  Serious: No
  Sender: AMGEN
  Company Number: US-AMGEN-USASP2025108771

PATIENT
  Sex: Female

DRUGS (1)
  1. PROLIA [Suspect]
     Active Substance: DENOSUMAB
     Indication: Product used for unknown indication
     Route: 065

REACTIONS (6)
  - Back pain [Unknown]
  - Fatigue [Unknown]
  - Renal pain [Unknown]
  - Muscle spasms [Unknown]
  - Bone pain [Unknown]
  - Activities of daily living decreased [Unknown]
